FAERS Safety Report 15148319 (Version 1)
Quarter: 2018Q3

REPORT INFORMATION
  Report Type: Spontaneous
  Country: US (occurrence: US)
  Receive Date: 20180716
  Receipt Date: 20180716
  Transmission Date: 20181010
  Serious: No
  Sender: FDA-Public Use
  Company Number: US-CELGENEUS-USA-20180703918

PATIENT
  Age: 47 Year
  Sex: Male

DRUGS (1)
  1. OTEZLA [Suspect]
     Active Substance: APREMILAST
     Indication: PSORIASIS
     Dosage: 60 MILLIGRAM
     Route: 048
     Dates: start: 20180619, end: 201807

REACTIONS (4)
  - Hyperhidrosis [Recovered/Resolved]
  - Diarrhoea [Recovered/Resolved]
  - Hypersomnia [Recovered/Resolved]
  - Mental status changes [Recovered/Resolved]

NARRATIVE: CASE EVENT DATE: 20180629
